FAERS Safety Report 8986404 (Version 1)
Quarter: 2012Q4

REPORT INFORMATION
  Report Type: Report from Study
  Country: CA (occurrence: CA)
  Receive Date: 20121227
  Receipt Date: 20121227
  Transmission Date: 20130627
  Serious: Yes (Other)
  Sender: FDA-Public Use
  Company Number: CA-JNJFOC-20121209952

PATIENT
  Age: 45 Year
  Sex: Female
  Weight: 62 kg

DRUGS (4)
  1. REMICADE [Suspect]
     Indication: RHEUMATOID ARTHRITIS
     Dosage: dose given at 0,2,6 weeks interval
     Route: 042
     Dates: start: 20121009
  2. REMICADE [Suspect]
     Indication: RHEUMATOID ARTHRITIS
     Route: 042
     Dates: start: 20121119
  3. METHOTREXATE [Concomitant]
     Route: 048
  4. ARAVA [Concomitant]
     Route: 048

REACTIONS (1)
  - Menorrhagia [Not Recovered/Not Resolved]
